FAERS Safety Report 8005860-3 (Version None)
Quarter: 2011Q4

REPORT INFORMATION
  Report Type: 
  Country: None (occurrence: None)
  Receive Date: 20111223
  Receipt Date: 20111216
  Transmission Date: 20120403
  Serious: Yes (Other)
  Sender: FDA-Public Use
  Company Number: FR-ROCHE-1021023

PATIENT
  Age: 63 Year
  Sex: Male

DRUGS (7)
  1. BOCEPREVIR [Suspect]
     Indication: HEPATITIS C
  2. LANTUS [Concomitant]
  3. COPEGUS [Suspect]
     Indication: HEPATITIS C
  4. FOLIC ACID [Concomitant]
  5. VIRAFERONPEG [Suspect]
     Indication: HEPATITIS C
  6. CORGARD [Concomitant]
  7. SPECIAFOLDINE [Concomitant]

REACTIONS (2)
  - NON-HODGKIN'S LYMPHOMA [None]
  - HEPATIC NEOPLASM MALIGNANT [None]
